FAERS Safety Report 12225383 (Version 2)
Quarter: 2016Q2

REPORT INFORMATION
  Report Type: Spontaneous
  Country: US (occurrence: US)
  Receive Date: 20160331
  Receipt Date: 20160411
  Transmission Date: 20160815
  Serious: No
  Sender: FDA-Public Use
  Company Number: US-GLAXOSMITHKLINE-US2016043606

PATIENT
  Age: 58 Year
  Sex: Female

DRUGS (1)
  1. ABREVA [Suspect]
     Active Substance: DOCOSANOL
     Indication: ORAL HERPES
     Dosage: UNK, COUPLE OF TIME IN A DAY

REACTIONS (4)
  - Incorrect drug administration duration [Unknown]
  - Oral herpes [Unknown]
  - Condition aggravated [Unknown]
  - Wrong technique in product usage process [Unknown]
